FAERS Safety Report 8958465 (Version 1)
Quarter: 2012Q4

REPORT INFORMATION
  Report Type: Spontaneous
  Country: US (occurrence: None)
  Receive Date: 20121205
  Receipt Date: 20121205
  Transmission Date: 20130627
  Serious: Yes (Hospitalization)
  Sender: FDA-Public Use
  Company Number: None

PATIENT
  Age: 80 Year
  Sex: Female
  Weight: 100 kg

DRUGS (1)
  1. MELOXICAM [Suspect]
     Route: 048
     Dates: start: 20110425, end: 20121121

REACTIONS (2)
  - Duodenal ulcer haemorrhage [None]
  - Gastric haemorrhage [None]
